FAERS Safety Report 10413623 (Version 1)
Quarter: 2014Q3

REPORT INFORMATION
  Report Type: Spontaneous
  Country: US (occurrence: US)
  Receive Date: 20140827
  Receipt Date: 20140827
  Transmission Date: 20150326
  Serious: Yes (Hospitalization, Other)
  Sender: FDA-Public Use
  Company Number: US-ELI_LILLY_AND_COMPANY-US201408007003

PATIENT
  Age: 57 Year
  Sex: Female
  Weight: 66.21 kg

DRUGS (3)
  1. LIPITOR [Interacting]
     Active Substance: ATORVASTATIN CALCIUM
     Dosage: 80 MG, QD
     Route: 065
     Dates: start: 201407
  2. EFFIENT [Suspect]
     Active Substance: PRASUGREL HYDROCHLORIDE
     Indication: ANTIPLATELET THERAPY
     Dosage: UNK
     Route: 065
     Dates: start: 201406
  3. LIPITOR [Interacting]
     Active Substance: ATORVASTATIN CALCIUM
     Indication: BLOOD CHOLESTEROL INCREASED
     Dosage: 80 MG, QD
     Route: 065
     Dates: start: 20140620

REACTIONS (3)
  - Intestinal haemorrhage [Unknown]
  - Abdominal pain upper [Unknown]
  - Drug interaction [Unknown]

NARRATIVE: CASE EVENT DATE: 201406
